FAERS Safety Report 7810808-8 (Version None)
Quarter: 2011Q4

REPORT INFORMATION
  Report Type: 
  Country: None (occurrence: None)
  Receive Date: 20111011
  Receipt Date: 20110926
  Transmission Date: 20120403
  Serious: Yes (Hospitalization, Other)
  Sender: FDA-Public Use
  Company Number: 1000023232

PATIENT
  Sex: Female
  Weight: 3.77 kg

DRUGS (4)
  1. NOVORAPID (INSULOIN ASPART) [Concomitant]
  2. FEFOL (FOLIC ACID) [Concomitant]
  3. CERVIDIL [Suspect]
     Dosage: 10 MG, ONCE, TRANSPLACENTAL
     Route: 064
     Dates: start: 20110811, end: 20110811
  4. HUMAN PROTAPHANE (INSULOIN HUMAN INJECTION, ISOPHANE) [Concomitant]

REACTIONS (9)
  - THALAMIC INFARCTION [None]
  - FOETAL DISTRESS SYNDROME [None]
  - ELECTROENCEPHALOGRAM ABNORMAL [None]
  - MATERNAL DRUGS AFFECTING FOETUS [None]
  - BRADYCARDIA FOETAL [None]
  - APGAR SCORE LOW [None]
  - HYPOXIC-ISCHAEMIC ENCEPHALOPATHY [None]
  - CONVULSION NEONATAL [None]
  - CAESAREAN SECTION [None]
